FAERS Safety Report 7803068-5 (Version None)
Quarter: 2011Q4

REPORT INFORMATION
  Report Type: 
  Country: None (occurrence: None)
  Receive Date: 20111007
  Receipt Date: 20111004
  Transmission Date: 20120403
  Serious: Yes (Hospitalization, Other)
  Sender: FDA-Public Use
  Company Number: AU-PFIZER INC-2011235870

PATIENT
  Sex: Female

DRUGS (5)
  1. PLAVIX [Concomitant]
  2. ACETYLSALICYLIC ACID [Concomitant]
  3. ZOLOFT [Suspect]
     Indication: DEPRESSION
     Dosage: 100 MG, UNK
  4. NITROGLYCERIN [Concomitant]
  5. IMTRATE [Concomitant]

REACTIONS (2)
  - ANGINA PECTORIS [None]
  - MYOCARDIAL INFARCTION [None]
